FAERS Safety Report 7547113-3 (Version None)
Quarter: 2011Q2

REPORT INFORMATION
  Report Type: 
  Country: None (occurrence: None)
  Receive Date: 20110614
  Receipt Date: 20110610
  Transmission Date: 20111010
  Serious: Yes (Hospitalization)
  Sender: FDA-Public Use
  Company Number: US-ELI_LILLY_AND_COMPANY-US201106001615

PATIENT
  Sex: Female
  Weight: 83.447 kg

DRUGS (1)
  1. EFFIENT [Suspect]
     Dosage: UNK
     Dates: start: 20110414, end: 20110509

REACTIONS (1)
  - ACUTE MYOCARDIAL INFARCTION [None]
